FAERS Safety Report 4981914-0 (Version None)
Quarter: 2006Q2

REPORT INFORMATION
  Report Type: 
  Country: None (occurrence: None)
  Receive Date: 20060425
  Receipt Date: 20050922
  Transmission Date: 20061013
  Serious: Yes (Hospitalization, Disabling)
  Sender: FDA-Public Use
  Company Number: US-MERCK-0509USA03617

PATIENT
  Age: 50 Year
  Sex: Male
  Weight: 109 kg

DRUGS (5)
  1. VIOXX [Suspect]
     Indication: ARTHRITIS
     Route: 048
     Dates: start: 20010910, end: 20040930
  2. LIPITOR [Concomitant]
     Indication: BLOOD CHOLESTEROL INCREASED
     Route: 065
  3. CEFTIN [Concomitant]
     Route: 065
  4. ASPIRIN [Concomitant]
     Route: 065
  5. HYDROCODONE HYDROCHLORIDE [Concomitant]
     Indication: PAIN
     Route: 065

REACTIONS (13)
  - ABDOMINAL PAIN [None]
  - ANXIETY [None]
  - CEREBROVASCULAR ACCIDENT [None]
  - DEPRESSION [None]
  - FOOT FRACTURE [None]
  - HAND FRACTURE [None]
  - HYPERTENSION [None]
  - HYPOAESTHESIA [None]
  - METABOLIC SYNDROME [None]
  - PERSONALITY DISORDER [None]
  - ROTATOR CUFF SYNDROME [None]
  - SINUSITIS [None]
  - STRESS [None]
